FAERS Safety Report 23442408 (Version 2)
Quarter: 2024Q1

REPORT INFORMATION
  Report Type: Other
  Country: GR (occurrence: GR)
  Receive Date: 20240125
  Receipt Date: 20240206
  Transmission Date: 20240410
  Serious: Yes (Hospitalization)
  Sender: FDA-Public Use
  Company Number: GR-BoehringerIngelheim-2024-BI-003086

PATIENT
  Age: 52 Year
  Sex: Male

DRUGS (2)
  1. ALTEPLASE [Suspect]
     Active Substance: ALTEPLASE
     Indication: Pleural effusion
     Route: 065
  2. DEOXYRIBONUCLEASE [Concomitant]

REACTIONS (4)
  - Pyrexia [Recovered/Resolved]
  - Infectious pleural effusion [Recovered/Resolved]
  - Adhesion [Recovered/Resolved]
  - Off label use [Unknown]
